FAERS Safety Report 9026929 (Version 4)
Quarter: 2013Q1

REPORT INFORMATION
  Report Type: Spontaneous
  Country: US (occurrence: US)
  Receive Date: 20130123
  Receipt Date: 20130328
  Transmission Date: 20140127
  Serious: Yes (Other)
  Sender: FDA-Public Use
  Company Number: US-PFIZER INC-2013022864

PATIENT
  Age: 63 Year
  Sex: Female
  Weight: 116 kg

DRUGS (28)
  1. XALKORI [Suspect]
     Indication: LUNG NEOPLASM MALIGNANT
     Dosage: 250 MG, 2X/DAY
     Route: 048
     Dates: start: 20121227
  2. PROTONIX [Concomitant]
     Indication: GASTROOESOPHAGEAL REFLUX DISEASE
     Dosage: UNK
  3. BUTALBITAL, ACETAMINOPHEN + CAFFEINE [Concomitant]
     Dosage: 2 DF, 4X/DAY, AS NEEDED
     Route: 048
  4. CARISOPRODOL [Concomitant]
     Dosage: 350 MG, (TAKE 1 PO AS DIRECTED)
     Route: 048
  5. DEXAMETHASONE [Concomitant]
     Dosage: 4 MG, 2X/DAY (THE DAY BEFORE AND AFTER THE TREATEMENT)
     Route: 048
  6. DIAZEPAM [Concomitant]
     Indication: ANXIETY
     Dosage: 5 MG, AS NEEDED (TAKE 1 PO Q6-8H PRN)
     Route: 048
  7. DIOVAN HCT [Concomitant]
     Dosage: 1 DF, 1X/DAY
     Route: 048
  8. EMLA [Concomitant]
     Dosage: LIDOCAINE 2.5%, PRILOCAINE 2.5%, 1 TOPICAL APPLICATION AS DIRECTED.
     Route: 061
  9. ESCITALOPRAM OXALATE [Concomitant]
     Dosage: 10 MG, DAILY
     Route: 048
  10. FOLIC ACID [Concomitant]
     Dosage: 1 MG, DAILY
     Route: 048
  11. GABAPENTIN [Concomitant]
     Dosage: 600 MG, 3X/DAY (300MG X2 TID)
     Route: 048
  12. HYDROXYZINE HYDROCHLORIDE [Concomitant]
     Dosage: 10 MG, AS NEEDED (TAKE 1 PO Q4-6H PRN)
     Route: 048
  13. JANUVIA [Concomitant]
     Dosage: 100 MG, 1X/DAY
     Route: 048
  14. KETOCONAZOLE [Concomitant]
     Dosage: 0.5, 2X/DAY
     Route: 061
  15. LASIX [Concomitant]
     Dosage: 20 MG, 1X/DAY
     Route: 048
  16. LESCOL XL [Concomitant]
     Dosage: 80 MG, 1X/DAY (QHS)
     Route: 048
  17. LIDODERM [Concomitant]
     Dosage: 700 MG, AS DIRECTED
     Route: 061
  18. MEDROL [Concomitant]
     Dosage: 4 MG, AS DIRECTED(DAY1 TAKE 6. DAY2 TAKE 5. DAY3 TAKE 4. DAY4 TAKE 3. DAY5 TAKE 2. DAY6 TAKE 1)
     Route: 048
  19. METFORMIN HYDROCHLORIDE [Concomitant]
     Dosage: 500 MG, 2X/DAY
     Route: 048
  20. METOPROLOL TARTRATE [Concomitant]
     Dosage: 100 MG, 2X/DAY
     Route: 048
  21. MONTELUKAST SODIUM [Concomitant]
     Dosage: 10 MG, DAILY
     Route: 048
  22. NYAMYC [Concomitant]
     Dosage: 1 G, 3X/DAY
     Route: 061
  23. ONDANSETRON HYDROCHLORIDE [Concomitant]
     Indication: NAUSEA
     Dosage: 8 MG, AS NEEDED (TAKE 1 PO Q8H PRN)
     Route: 048
  24. OXAZEPAM [Concomitant]
     Dosage: 15 MG, 3X/DAY
     Route: 048
  25. OXYCODONE HYDROCHLORIDE [Concomitant]
     Dosage: 30 MG TABLET 0.07, AS NEEDED (Q4H PRN)
     Route: 048
  26. PEMETREXED DISODIUM [Concomitant]
     Dosage: 500 MG/M2, CYCLIC (1000MG I.V Q 21DAYS AS DIRECTED)
     Route: 042
  27. PROCHLORPERAZINE MALEATE [Concomitant]
     Indication: NAUSEA
     Dosage: 10 MG, AS NEEDED (TAKE 1 PO Q6H PRN)
     Route: 048
  28. PANTOPRAZOLE SODIUM [Concomitant]
     Dosage: 20 MG, DAILY
     Route: 048

REACTIONS (10)
  - Pneumonia [Unknown]
  - Oesophageal infection [Unknown]
  - Vitreous floaters [Unknown]
  - Vision blurred [Unknown]
  - Oral disorder [Unknown]
  - Hypoaesthesia oral [Unknown]
  - Dysgeusia [Recovered/Resolved]
  - Fatigue [Unknown]
  - Disease progression [Unknown]
  - Lung neoplasm malignant [Unknown]
